FAERS Safety Report 7706691-1 (Version None)
Quarter: 2011Q3

REPORT INFORMATION
  Report Type: 
  Country: None (occurrence: None)
  Receive Date: 20110824
  Receipt Date: 20110815
  Transmission Date: 20111222
  Serious: Yes (Hospitalization)
  Sender: FDA-Public Use
  Company Number: US-JNJFOC-20110303535

PATIENT
  Sex: Male

DRUGS (2)
  1. INVEGA SUSTENNA [Suspect]
     Indication: SCHIZOPHRENIA
     Route: 030
     Dates: start: 20110215
  2. INVEGA SUSTENNA [Suspect]
     Route: 030
     Dates: start: 20110208

REACTIONS (3)
  - CELLULITIS [None]
  - SCHIZOPHRENIA [None]
  - PRODUCT QUALITY ISSUE [None]
